FAERS Safety Report 18724474 (Version 1)
Quarter: 2021Q1

REPORT INFORMATION
  Report Type: Spontaneous
  Country: US (occurrence: US)
  Receive Date: 20210111
  Receipt Date: 20210111
  Transmission Date: 20210419
  Serious: No
  Sender: FDA-Public Use
  Company Number: None

PATIENT
  Age: 69 Year
  Sex: Male

DRUGS (2)
  1. ATORVASTATIN (ATORVASTATIN CA 80MG TAB) [Suspect]
     Active Substance: ATORVASTATIN
     Route: 048
  2. LISINOPRIL (LISINOPRIL 5MG TAB) [Suspect]
     Active Substance: LISINOPRIL
     Indication: HYPERTENSION
     Route: 048
     Dates: start: 20160122, end: 20200831

REACTIONS (1)
  - Rash [None]

NARRATIVE: CASE EVENT DATE: 20200727
